FAERS Safety Report 12833235 (Version 1)
Quarter: 2016Q4

REPORT INFORMATION
  Report Type: Report from Study
  Country: US (occurrence: US)
  Receive Date: 20161010
  Receipt Date: 20161010
  Transmission Date: 20170207
  Serious: Yes (Other)
  Sender: FDA-Public Use
  Company Number: US-GILEAD-2016-0237125

PATIENT
  Age: 44 Year
  Sex: Female

DRUGS (1)
  1. LEDIPASVIR/SOFOSBUVIR [Suspect]
     Active Substance: LEDIPASVIR\SOFOSBUVIR
     Indication: HEPATITIS C
     Dosage: 1 DF, UNK
     Route: 048
     Dates: start: 201608

REACTIONS (4)
  - Dysgeusia [Unknown]
  - Rhinorrhoea [Unknown]
  - Fatigue [Unknown]
  - Suicidal ideation [Not Recovered/Not Resolved]
